FAERS Safety Report 8475246-6 (Version None)
Quarter: 2012Q2

REPORT INFORMATION
  Report Type: 
  Country: None (occurrence: None)
  Receive Date: 20120628
  Receipt Date: 20120625
  Transmission Date: 20120825
  Serious: Yes (Other)
  Sender: FDA-Public Use
  Company Number: US-TEVA-342344USA

PATIENT
  Sex: Female
  Weight: 49.486 kg

DRUGS (2)
  1. TAMOXIFEN CITRATE [Suspect]
     Indication: BREAST CANCER
     Dosage: RECEIVED ONCE
     Dates: start: 20120414, end: 20120415
  2. LEVOTHYROXINE SODIUM [Concomitant]
     Dosage: 150 MILLIGRAM;
     Route: 048
     Dates: start: 19900101

REACTIONS (5)
  - DYSPNOEA [None]
  - ARRHYTHMIA [None]
  - CHEST PAIN [None]
  - HYPERSENSITIVITY [None]
  - TACHYCARDIA [None]
